FAERS Safety Report 9205069 (Version 1)
Quarter: 2013Q2

REPORT INFORMATION
  Report Type: Spontaneous
  Country: US (occurrence: US)
  Receive Date: 20130402
  Receipt Date: 20130402
  Transmission Date: 20140414
  Serious: No
  Sender: FDA-Public Use
  Company Number: US-009507513-1303USA011405

PATIENT
  Age: 17 Year
  Sex: Female

DRUGS (2)
  1. IMPLANON [Suspect]
     Indication: CONTRACEPTION
     Dosage: 1 ROD
     Route: 059
     Dates: end: 20130320
  2. IMPLANON [Suspect]
     Indication: VAGINAL HAEMORRHAGE

REACTIONS (6)
  - Metrorrhagia [Unknown]
  - Pain in extremity [Unknown]
  - Device breakage [Unknown]
  - Device difficult to use [Unknown]
  - Product quality issue [Unknown]
  - Device kink [Unknown]
